FAERS Safety Report 8715855 (Version 3)
Quarter: 2012Q4

REPORT INFORMATION
  Report Type: Spontaneous
  Country: DK (occurrence: None)
  Receive Date: 20120725
  Receipt Date: 20121010
  Transmission Date: 20130627
  Serious: Yes (Death, Hospitalization, Other)
  Sender: FDA-Public Use
  Company Number: AUR-APL-2012-03177

PATIENT
  Age: 78 Year
  Sex: Female

DRUGS (3)
  1. METFORMIN HYDROCHLORIDE [Suspect]
     Indication: PRODUCT USED FOR UNKNOWN INDICATION
     Dosage: 3G/DAY
  2. DIGOXIN [Concomitant]
  3. WARFARIN SODIUM [Concomitant]

REACTIONS (8)
  - Lactic acidosis [None]
  - Haemodialysis [None]
  - Bradycardia [None]
  - Nodal rhythm [None]
  - Cardiac failure acute [None]
  - Atrial fibrillation [None]
  - Renal impairment [None]
  - Hypotension [None]
